FAERS Safety Report 8005092-9 (Version None)
Quarter: 2011Q4

REPORT INFORMATION
  Report Type: 
  Country: None (occurrence: None)
  Receive Date: 20111223
  Receipt Date: 20111212
  Transmission Date: 20120403
  Serious: Yes (Hospitalization)
  Sender: FDA-Public Use
  Company Number: PHHY2011FR91315

PATIENT
  Sex: Female
  Weight: 97 kg

DRUGS (8)
  1. EXFORGE [Suspect]
     Indication: HYPERTENSION
     Dosage: 1 DF, (80 MG VAL AND 5 MG AMLO) QD
     Route: 048
  2. LEXOMIL [Concomitant]
  3. LEVOTHYROXINE SODIUM [Concomitant]
     Dosage: 137.5 UG, DAILY
  4. VENTOLIN [Concomitant]
     Indication: ASTHMA
     Dosage: 2 DF, (PUFFS) DAILY
  5. FUROSEMIDE [Concomitant]
     Indication: HYPERTENSION
     Dosage: 40 MG, QD
  6. PULMICORT [Concomitant]
     Indication: ASTHMA
     Dosage: 1 MG, DAILY
  7. SPIRIVA [Concomitant]
     Dosage: 1 DF, QD
  8. EXFORGE [Suspect]
     Dosage: 1 DF, (80 MG VAL AND 5 MG AMLO) QD
     Dates: start: 20111011

REACTIONS (21)
  - BRONCHIAL DISORDER [None]
  - HYPOVENTILATION [None]
  - MUSCLE SPASTICITY [None]
  - BRONCHIAL INJURY [None]
  - CHOKING [None]
  - DYSPNOEA [None]
  - WHEEZING [None]
  - INCORRECT ROUTE OF DRUG ADMINISTRATION [None]
  - BRONCHOSTENOSIS [None]
  - HYPOXIA [None]
  - INFLAMMATION [None]
  - BRONCHIAL OEDEMA [None]
  - PYREXIA [None]
  - RESPIRATORY FAILURE [None]
  - HIATUS HERNIA [None]
  - BRONCHIAL HAEMORRHAGE [None]
  - PULMONARY NECROSIS [None]
  - APNOEA [None]
  - PCO2 INCREASED [None]
  - WEIGHT DECREASED [None]
  - CHONDROPATHY [None]
